FAERS Safety Report 22247505 (Version 1)
Quarter: 2023Q2

REPORT INFORMATION
  Report Type: Report from Study
  Country: GR (occurrence: GR)
  Receive Date: 20230425
  Receipt Date: 20230425
  Transmission Date: 20230722
  Serious: Yes (Hospitalization, Other)
  Sender: FDA-Public Use
  Company Number: GR-AMGEN-GRCNI2022229084

PATIENT
  Age: 64 Year
  Sex: Male

DRUGS (5)
  1. STELARA [Suspect]
     Active Substance: USTEKINUMAB
     Indication: Crohn^s disease
     Dosage: 90 MILLIGRAM, Q8WK
     Route: 058
     Dates: start: 20190523, end: 20200125
  2. BUDESONIDE [Suspect]
     Active Substance: BUDESONIDE
     Indication: Crohn^s disease
     Dosage: 03 MILLIGRAM, QD
     Route: 048
     Dates: start: 20190824, end: 20191123
  3. ADALIMUMAB [Suspect]
     Active Substance: ADALIMUMAB
     Indication: Crohn^s disease
     Dosage: 40 MILLIGRAM, QWK
     Route: 058
     Dates: start: 20210802, end: 20210929
  4. HUMIRA [Suspect]
     Active Substance: ADALIMUMAB
     Indication: Crohn^s disease
     Dosage: 40 MILLIGRAM, Q2WK
     Route: 058
     Dates: start: 20170911, end: 20190523
  5. HUMIRA [Suspect]
     Active Substance: ADALIMUMAB
     Dosage: 40 MILLIGRAM, Q2WK
     Route: 058
     Dates: start: 20200125, end: 20210802

REACTIONS (3)
  - Hodgkin^s disease [Recovering/Resolving]
  - Iron deficiency anaemia [Recovering/Resolving]
  - Iron deficiency anaemia [Recovering/Resolving]

NARRATIVE: CASE EVENT DATE: 20200824
